FAERS Safety Report 11523173 (Version 1)
Quarter: 2015Q3

REPORT INFORMATION
  Report Type: Spontaneous
  Country: CA (occurrence: CA)
  Receive Date: 20150918
  Receipt Date: 20150918
  Transmission Date: 20151125
  Serious: Yes (Hospitalization)
  Sender: FDA-Public Use
  Company Number: CA-IPCA LABORATORIES LIMITED-IPC201509-000597

PATIENT
  Age: 63 Year
  Sex: Male
  Weight: 74 kg

DRUGS (17)
  1. ACETYLSALICYLIC ACID [Concomitant]
     Active Substance: ASPIRIN
     Route: 048
  2. CLOPIDOGREL [Concomitant]
     Active Substance: CLOPIDOGREL BISULFATE
     Route: 048
  3. METOPROLOL TARTRATE. [Suspect]
     Active Substance: METOPROLOL TARTRATE
  4. FUROSEMIDE. [Concomitant]
     Active Substance: FUROSEMIDE
     Route: 048
  5. POTASSIUM CHLORIDE. [Concomitant]
     Active Substance: POTASSIUM CHLORIDE
     Route: 048
  6. RIVASTAGMINE [Concomitant]
  7. TRANDOLAPRIL. [Concomitant]
     Active Substance: TRANDOLAPRIL
     Route: 048
  8. RIVASTAGMINE [Concomitant]
     Route: 048
  9. RIVASTAGMINE [Concomitant]
  10. RIVASTAGMINE [Concomitant]
  11. METOPROLOL TARTRATE. [Suspect]
     Active Substance: METOPROLOL TARTRATE
     Indication: CORONARY ARTERY DISEASE
     Route: 048
  12. ATORVASTATIN [Concomitant]
     Active Substance: ATORVASTATIN
     Route: 048
  13. DOMPERIDONE [Concomitant]
     Active Substance: DOMPERIDONE
     Route: 048
  14. METOPROLOL TARTRATE. [Suspect]
     Active Substance: METOPROLOL TARTRATE
  15. CICLOPIROX. [Concomitant]
     Active Substance: CICLOPIROX
     Route: 061
  16. TERBINAFINE. [Suspect]
     Active Substance: TERBINAFINE
     Indication: ONYCHOMYCOSIS
     Route: 048
  17. ACETAMINOPHEN. [Concomitant]
     Active Substance: ACETAMINOPHEN
     Route: 048

REACTIONS (3)
  - Sinus bradycardia [Recovered/Resolved]
  - Drug interaction [Unknown]
  - Dementia [Recovering/Resolving]
